FAERS Safety Report 10648871 (Version 1)
Quarter: 2014Q4

REPORT INFORMATION
  Report Type: Spontaneous
  Country: US (occurrence: None)
  Receive Date: 20141205
  Receipt Date: 20141205
  Transmission Date: 20150529
  Serious: No
  Sender: FDA-Public Use
  Company Number: 163-POMAL-14093274

PATIENT
  Age: 60 Year
  Sex: Female
  Weight: 46.3 kg

DRUGS (12)
  1. LEXAPRO(ESCITALOPRAM OXALATE) (UNKNOWN) [Concomitant]
  2. TYLENOL(PARACETAMOL) (UNKNOWN) [Concomitant]
  3. DEXAMETHASONE(DEXAMETHASONE) (UNKNOWN) [Concomitant]
  4. SIMETHICONE(UNKNOWN) [Concomitant]
  5. POMALYST [Suspect]
     Active Substance: POMALIDOMIDE
     Indication: PLASMA CELL MYELOMA
     Dosage: 21 IN 28 D
     Route: 048
     Dates: start: 20140729
  6. CLONAZEPAM(CLONAZEPAM) (UNKNOWN) [Concomitant]
  7. ADVIL(IBUPROFEN) (UNKNOWN) [Concomitant]
  8. VITAMIN D3(COLECALCIFEROL) (UNKNOWN) [Concomitant]
  9. ZOLOFT(SERTRALINE HYDROCHLORIDE) (UNKNOWN) [Concomitant]
  10. PROMETHAZINE(PROMETHAZINE) (UNKNOWN) [Concomitant]
  11. BIAXIN(CLARITHROMYCIN) (UNKNOWN) [Concomitant]
  12. NEURONTIN (GABAPENTIN) (UNKNOWN) [Concomitant]

REACTIONS (3)
  - Anxiety [None]
  - Depression [None]
  - Dizziness [None]
